FAERS Safety Report 25986041 (Version 1)
Quarter: 2025Q4

REPORT INFORMATION
  Report Type: Spontaneous
  Country: US (occurrence: US)
  Receive Date: 20251031
  Receipt Date: 20251031
  Transmission Date: 20260118
  Serious: Yes (Hospitalization, Other)
  Sender: GENUS LIFESCIENCES
  Company Number: US-Genus_Lifesciences-USA-ALL0580202500140

PATIENT
  Age: 20 Year
  Sex: Male
  Weight: 91 kg

DRUGS (2)
  1. HYCODAN [Suspect]
     Active Substance: HOMATROPINE METHYLBROMIDE\HYDROCODONE BITARTRATE
     Indication: Procedural pain
     Dosage: ONCE
     Route: 048
     Dates: start: 2025, end: 2025
  2. IBUPROFEN [Concomitant]
     Active Substance: IBUPROFEN
     Indication: Procedural pain
     Dosage: ONCE
     Route: 048
     Dates: start: 2025

REACTIONS (4)
  - Apnoeic attack [Recovered/Resolved]
  - Monoplegia [Recovered/Resolved]
  - Mental status changes [Recovered/Resolved]
  - Paraesthesia [Recovered/Resolved]

NARRATIVE: CASE EVENT DATE: 20250101
